FAERS Safety Report 10340247 (Version 1)
Quarter: 2014Q3

REPORT INFORMATION
  Report Type: Spontaneous
  Country: US (occurrence: US)
  Receive Date: 20140724
  Receipt Date: 20140724
  Transmission Date: 20150326
  Serious: Yes (Other)
  Sender: FDA-Public Use
  Company Number: US-ASTELLAS-2014US008718

PATIENT
  Age: 85 Year
  Sex: Male

DRUGS (1)
  1. XTANDI [Suspect]
     Active Substance: ENZALUTAMIDE
     Indication: PRODUCT USED FOR UNKNOWN INDICATION
     Dates: start: 20140617

REACTIONS (6)
  - Gingival bleeding [Unknown]
  - Fatigue [Unknown]
  - Activities of daily living impaired [Unknown]
  - Asthenia [Unknown]
  - Platelet count decreased [Unknown]
  - Gingival injury [Unknown]

NARRATIVE: CASE EVENT DATE: 20140710
